FAERS Safety Report 5299469-2 (Version None)
Quarter: 2007Q2

REPORT INFORMATION
  Report Type: 
  Country: None (occurrence: None)
  Receive Date: 20070417
  Receipt Date: 20070410
  Transmission Date: 20071010
  Serious: Yes (Hospitalization, Other)
  Sender: FDA-Public Use
  Company Number: DE-ELI_LILLY_AND_COMPANY-DE200704002884

PATIENT
  Sex: Female

DRUGS (3)
  1. ZYPREXA [Suspect]
     Indication: BURNOUT SYNDROME
     Dosage: UNK, UNKNOWN
     Route: 065
  2. CIPRALEX [Concomitant]
     Route: 065
  3. ANTIDEPRESSANTS [Concomitant]
     Dosage: UNK, UNKNOWN
     Route: 065

REACTIONS (4)
  - BURNOUT SYNDROME [None]
  - COMA [None]
  - DEPRESSION [None]
  - SUICIDE ATTEMPT [None]
